FAERS Safety Report 4590669-3 (Version None)
Quarter: 2005Q1

REPORT INFORMATION
  Report Type: 
  Country: None (occurrence: None)
  Receive Date: 20050224
  Receipt Date: 20050215
  Transmission Date: 20050727
  Serious: Yes (Death, Other)
  Sender: FDA-Public Use
  Company Number: US-ABBOTT-05P-163-0290895-00

PATIENT
  Sex: Female

DRUGS (1)
  1. VICODIN [Suspect]
     Indication: PAIN
     Route: 048
     Dates: start: 20041101, end: 20041205

REACTIONS (2)
  - GUN SHOT WOUND [None]
  - INTENTIONAL MISUSE [None]
